FAERS Safety Report 9178159 (Version 1)
Quarter: 2013Q1

REPORT INFORMATION
  Report Type: Spontaneous
  Country: US (occurrence: US)
  Receive Date: 20130321
  Receipt Date: 20130321
  Transmission Date: 20140127
  Serious: Yes (Hospitalization)
  Sender: FDA-Public Use
  Company Number: US-ASTRAZENECA-2013SE17792

PATIENT
  Age: 56 Year
  Sex: Female

DRUGS (2)
  1. SEROQUEL [Suspect]
     Indication: SLEEP DISORDER
     Dosage: HS
     Route: 048
  2. TOO MANY PRESCRIPTION MEDICATION [Concomitant]

REACTIONS (10)
  - Abnormal behaviour [Unknown]
  - Psychotic disorder [Unknown]
  - Mania [Unknown]
  - Delusional disorder, unspecified type [Unknown]
  - Adverse event [Unknown]
  - Hallucination [Unknown]
  - Judgement impaired [Unknown]
  - Insomnia [Unknown]
  - Circadian rhythm sleep disorder [Unknown]
  - Off label use [Unknown]
